FAERS Safety Report 15096541 (Version 1)
Quarter: 2018Q3

REPORT INFORMATION
  Report Type: Other
  Country: US (occurrence: US)
  Receive Date: 20180702
  Receipt Date: 20180702
  Transmission Date: 20181010
  Serious: No
  Sender: FDA-Public Use
  Company Number: US-EXELTIS USA INC.-2051161

PATIENT
  Age: 31 Year
  Sex: Female
  Weight: 78.18 kg

DRUGS (1)
  1. BENZNIDAZOLE. [Suspect]
     Active Substance: BENZNIDAZOLE
     Indication: AMERICAN TRYPANOSOMIASIS
     Route: 048
     Dates: start: 20180527, end: 20180605

REACTIONS (1)
  - Rash generalised [None]
